FAERS Safety Report 9449102 (Version 2)
Quarter: 2013Q3

REPORT INFORMATION
  Report Type: Spontaneous
  Country: US (occurrence: None)
  Receive Date: 20130806
  Receipt Date: 20130814
  Transmission Date: 20140515
  Serious: Yes (Hospitalization)
  Sender: FDA-Public Use
  Company Number: A1035383A

PATIENT
  Age: 76 Year
  Sex: Female

DRUGS (2)
  1. ALGINIC ACID\ALUMINUM HYDROXIDE\MAGNESIUM CARBONATE [Suspect]
     Indication: GASTRIC CANCER
  2. LANSOPRAZOLE [Concomitant]

REACTIONS (7)
  - Pancreatitis [None]
  - Asthenia [None]
  - Gallbladder disorder [None]
  - Cholelithiasis [None]
  - Gallbladder obstruction [None]
  - Vomiting [None]
  - Off label use [None]
